FAERS Safety Report 7233676-4 (Version None)
Quarter: 2011Q1

REPORT INFORMATION
  Report Type: 
  Country: None (occurrence: None)
  Receive Date: 20110119
  Receipt Date: 20091216
  Transmission Date: 20110831
  Serious: No
  Sender: FDA-Public Use
  Company Number: US-TEVA-218296USA

PATIENT
  Sex: Female

DRUGS (4)
  1. DEXAMETHASONE [Concomitant]
  2. COPAXONE [Suspect]
     Indication: MULTIPLE SCLEROSIS
     Route: 058
     Dates: start: 20080601
  3. DIVELLE DOT (HORMONES) [Concomitant]
  4. LIOTHYRONINE SODIUM [Concomitant]

REACTIONS (1)
  - BLOOD CORTISOL INCREASED [None]
